FAERS Safety Report 8966223 (Version 4)
Quarter: 2013Q1

REPORT INFORMATION
  Report Type: Spontaneous
  Country: JP (occurrence: JP)
  Receive Date: 20121217
  Receipt Date: 20130118
  Transmission Date: 20140127
  Serious: Yes (Life-Threatening, Hospitalization, Other)
  Sender: FDA-Public Use
  Company Number: JP-PFIZER INC-2012313647

PATIENT
  Age: 54 Year
  Sex: Male
  Weight: 55 kg

DRUGS (5)
  1. ZITHROMAC SR [Suspect]
     Indication: NASOPHARYNGITIS
     Dosage: 2 G, SINGLE
     Route: 048
     Dates: start: 20121211, end: 20121211
  2. CRESTOR [Concomitant]
     Dosage: 2.5 G, 1X/DAY
     Route: 048
  3. PL GRAN. [Concomitant]
     Indication: NASOPHARYNGITIS
     Dosage: 1 DF, 3X/DAY
     Route: 048
     Dates: start: 20121211, end: 20121212
  4. URSO [Concomitant]
     Dosage: UNK
     Route: 048
  5. CINAL [Concomitant]
     Indication: NASOPHARYNGITIS
     Dosage: 1 DF, 3X/DAY
     Route: 048
     Dates: start: 20121211, end: 20121212

REACTIONS (1)
  - Delirium [Recovered/Resolved]
